FAERS Safety Report 6437076-6 (Version None)
Quarter: 2009Q4

REPORT INFORMATION
  Report Type: 
  Country: None (occurrence: None)
  Receive Date: 20091112
  Receipt Date: 20091030
  Transmission Date: 20100525
  Serious: Yes (Other)
  Sender: FDA-Public Use
  Company Number: GB-ELI_LILLY_AND_COMPANY-GB200911000067

PATIENT
  Age: 55 Year
  Sex: Male
  Weight: 93 kg

DRUGS (8)
  1. ZYPREXA [Suspect]
     Indication: SCHIZOPHRENIA
     Dosage: 20 MG, UNKNOWN
     Route: 048
  2. CLOZARIL [Concomitant]
     Indication: SCHIZOPHRENIA
     Dosage: UNK, UNKNOWN
     Route: 048
     Dates: start: 20071003, end: 20071201
  3. LACTULOSE [Concomitant]
     Dosage: 15 ML, 2/D
  4. LORAZEPAM [Concomitant]
     Dosage: 2 MG, 3/D
  5. PARACETAMOL [Concomitant]
     Dosage: 1 G, DAILY (1/D)
  6. PROCYCLIDINE HYDROCHLORIDE 2MG TAB [Concomitant]
     Indication: EXTRAPYRAMIDAL DISORDER
     Dosage: 5 MG, 3/D
     Route: 048
  7. ALBUTEROL [Concomitant]
     Indication: ASTHMA
     Dosage: UNK, DAILY (1/D)
     Route: 055
  8. VALPROATE SODIUM [Concomitant]
     Indication: MOOD ALTERED
     Dosage: 1000 MG, 2/D
     Route: 048

REACTIONS (3)
  - AGRANULOCYTOSIS [None]
  - COUGH [None]
  - NASOPHARYNGITIS [None]
